FAERS Safety Report 25113675 (Version 1)
Quarter: 2025Q1

REPORT INFORMATION
  Report Type: Spontaneous
  Country: US (occurrence: None)
  Receive Date: 20250322
  Receipt Date: 20250322
  Transmission Date: 20250409
  Serious: Yes (Other)
  Sender: FDA-CTU
  Company Number: None

PATIENT
  Age: 63 Year
  Sex: Male
  Weight: 83.25 kg

DRUGS (1)
  1. MONTELUKAST [Suspect]
     Active Substance: MONTELUKAST

REACTIONS (4)
  - Irritability [None]
  - Insomnia [None]
  - Heart rate increased [None]
  - Feeling hot [None]

NARRATIVE: CASE EVENT DATE: 20250322
